FAERS Safety Report 19080555 (Version 2)
Quarter: 2021Q2

REPORT INFORMATION
  Report Type: Spontaneous
  Country: DE (occurrence: DE)
  Receive Date: 20210331
  Receipt Date: 20210504
  Transmission Date: 20210717
  Serious: Yes (Other)
  Sender: FDA-Public Use
  Company Number: DE-ROCHE-2799397

PATIENT
  Age: 60 Year
  Sex: Female
  Weight: 81 kg

DRUGS (5)
  1. URBASON [Suspect]
     Active Substance: METHYLPREDNISOLONE
     Indication: PREMEDICATION
     Dosage: NEXT DOSE ON 11/MAR/2021
     Route: 042
     Dates: start: 20190726
  2. FENISTIL [Concomitant]
     Active Substance: DIMETHINDENE
  3. OCREVUS [Suspect]
     Active Substance: OCRELIZUMAB
     Indication: RELAPSING MULTIPLE SCLEROSIS
     Route: 042
     Dates: start: 20190726
  4. OCREVUS [Suspect]
     Active Substance: OCRELIZUMAB
     Route: 042
     Dates: start: 20210311
  5. HISTAKUT [Suspect]
     Active Substance: DIMETHINDENE MALEATE
     Indication: PREMEDICATION
     Dosage: NEXT DOSE ON 11/MAR/2021
     Route: 042
     Dates: start: 20190726

REACTIONS (2)
  - Multiple sclerosis relapse [Unknown]
  - Infusion related reaction [Unknown]
